FAERS Safety Report 10476834 (Version 1)
Quarter: 2014Q3

REPORT INFORMATION
  Report Type: Spontaneous
  Country: GB (occurrence: GB)
  Receive Date: 20140926
  Receipt Date: 20140926
  Transmission Date: 20150326
  Serious: Yes (Hospitalization)
  Sender: FDA-Public Use
  Company Number: GB-NOVOPROD-422689

PATIENT
  Age: 58 Year
  Sex: Female
  Weight: 104.7 kg

DRUGS (13)
  1. VICTOZA [Suspect]
     Active Substance: LIRAGLUTIDE
     Indication: TYPE 2 DIABETES MELLITUS
     Route: 065
     Dates: start: 20140704
  2. AMLODIPINE [Concomitant]
     Active Substance: AMLODIPINE BESYLATE
     Dates: start: 20140529
  3. BENDROFLUMETHIAZIDE [Concomitant]
     Active Substance: BENDROFLUMETHIAZIDE
     Dates: start: 20140529, end: 20140820
  4. RANITIDINE [Concomitant]
     Active Substance: RANITIDINE\RANITIDINE HYDROCHLORIDE
     Dates: start: 20140902
  5. CANDESARTAN [Concomitant]
     Active Substance: CANDESARTAN
     Dates: start: 20140529, end: 20140820
  6. OMEPRAZOLE. [Concomitant]
     Active Substance: OMEPRAZOLE
     Dates: start: 20140529, end: 20140820
  7. MICONAZOLE [Concomitant]
     Active Substance: MICONAZOLE
     Dates: start: 20140723, end: 20140820
  8. ATORVASTATIN [Concomitant]
     Active Substance: ATORVASTATIN
     Dates: start: 20140529
  9. COCODAMOL [Concomitant]
     Active Substance: ACETAMINOPHEN\CODEINE PHOSPHATE
     Dates: start: 20140529, end: 20140626
  10. CO-MAGALDROX [Concomitant]
     Dates: start: 20140902
  11. METFORMIN [Concomitant]
     Active Substance: METFORMIN HYDROCHLORIDE
     Dates: start: 20140529
  12. SANDO K                            /00031402/ [Concomitant]
     Dates: start: 20140529
  13. ADCAL                              /00056901/ [Concomitant]
     Active Substance: CARBAZOCHROME
     Dates: start: 20140902

REACTIONS (4)
  - Hypokalaemia [Recovering/Resolving]
  - Vomiting [Recovering/Resolving]
  - Hypomagnesaemia [Recovering/Resolving]
  - Diarrhoea [Recovering/Resolving]

NARRATIVE: CASE EVENT DATE: 20140904
